FAERS Safety Report 10040273 (Version 1)
Quarter: 2014Q1

REPORT INFORMATION
  Report Type: Spontaneous
  Country: GB (occurrence: GB)
  Receive Date: 20140327
  Receipt Date: 20140327
  Transmission Date: 20141002
  Serious: Yes (Other)
  Sender: FDA-Public Use
  Company Number: GB-AMGEN-GBRSP2014020255

PATIENT
  Age: 71 Year
  Sex: Female
  Weight: 47.6 kg

DRUGS (8)
  1. PROLIA [Suspect]
     Indication: OSTEOPOROSIS
     Dosage: 60 MG, UNK
     Route: 058
  2. ASPIRIN [Concomitant]
     Dosage: 75 MG, UNK, 1/1DAY
     Route: 048
  3. BISOPROLOL [Concomitant]
     Dosage: 2.5 MG, UNK. 1/1DAY
     Route: 048
  4. CALCICHEW D3 [Concomitant]
     Dosage: 2 DF, UNK, 1/1DAY
     Route: 048
  5. CO-CODAMOL [Concomitant]
     Dosage: 2 DF, UNK, 1/1DAY
     Route: 048
  6. EPILIM [Concomitant]
     Dosage: 1 DF, UNK, 3/1DAY
     Route: 048
  7. RAMIPRIL [Concomitant]
     Dosage: 2.5 MG, UNK, 2/1DAY
     Route: 065
  8. SIMVASTATIN [Concomitant]
     Dosage: 100 MG, UNK
     Route: 065

REACTIONS (2)
  - Pain [Not Recovered/Not Resolved]
  - Sciatica [Not Recovered/Not Resolved]
